FAERS Safety Report 9099579 (Version 1)
Quarter: 2013Q1

REPORT INFORMATION
  Report Type: Spontaneous
  Country: US (occurrence: US)
  Receive Date: 20130214
  Receipt Date: 20130214
  Transmission Date: 20140127
  Serious: Yes (Hospitalization)
  Sender: FDA-Public Use
  Company Number: PHEH2013US003345

PATIENT
  Age: 32 Year
  Sex: Male
  Weight: 65.7 kg

DRUGS (7)
  1. MYFORTIC [Suspect]
     Indication: IMMUNOSUPPRESSION
     Dosage: UNK UKN, UNK
     Dates: start: 20110204, end: 20110417
  2. MYFORTIC [Suspect]
     Dosage: 360 MG, BID
     Dates: start: 20110428
  3. LOPRESSOR [Suspect]
     Indication: HYPERTENSION
     Dosage: UNK UKN, UNK
     Dates: start: 20110207
  4. TACROLIMUS [Suspect]
     Indication: IMMUNOSUPPRESSION
     Dosage: 2 MG, BID
     Dates: start: 20110202
  5. VALCYTE [Suspect]
     Indication: INFECTION PROPHYLAXIS
     Dosage: UNK UKN, UNK
     Dates: start: 20110206, end: 20110417
  6. VALCYTE [Suspect]
     Dosage: UNK
     Dates: start: 20110428
  7. MYCELEX [Suspect]
     Indication: INFECTION PROPHYLAXIS
     Dosage: UNK UKN, UNK
     Dates: start: 20110207

REACTIONS (4)
  - Febrile neutropenia [Recovered/Resolved]
  - Chills [Unknown]
  - Pyrexia [Unknown]
  - Blood creatinine increased [Unknown]
